FAERS Safety Report 6076868-2 (Version None)
Quarter: 2009Q1

REPORT INFORMATION
  Report Type: 
  Country: None (occurrence: None)
  Receive Date: 20090213
  Receipt Date: 20090202
  Transmission Date: 20090719
  Serious: Yes (Hospitalization)
  Sender: FDA-Public Use
  Company Number: IL-JNJFOC-20081200319

PATIENT
  Age: 13 Year
  Sex: Male

DRUGS (5)
  1. REMICADE [Suspect]
     Dosage: 4TH INFUSION
     Route: 042
  2. REMICADE [Suspect]
     Indication: CROHN'S DISEASE
     Route: 042
  3. AZATHIAPRINE [Concomitant]
  4. PREDNISONE [Concomitant]
  5. ANTIHISTAMINE [Concomitant]

REACTIONS (4)
  - DYSPNOEA [None]
  - ERYTHEMA [None]
  - INFUSION RELATED REACTION [None]
  - SWELLING [None]
